FAERS Safety Report 18036438 (Version 1)
Quarter: 2020Q3

REPORT INFORMATION
  Report Type: Spontaneous
  Country: JP (occurrence: JP)
  Receive Date: 20200717
  Receipt Date: 20200717
  Transmission Date: 20201103
  Serious: Yes (Other)
  Sender: FDA-Public Use
  Company Number: JP-VIIV HEALTHCARE LIMITED-JP2020JPN122191

PATIENT
  Age: 50 Year
  Sex: Male
  Weight: 78 kg

DRUGS (12)
  1. MYSLEE TABLETS [Concomitant]
     Dosage: 1 DF, 1D
     Dates: start: 201111
  2. DESCOVY [Concomitant]
     Active Substance: EMTRICITABINE\TENOFOVIR ALAFENAMIDE FUMARATE
     Indication: HIV INFECTION
     Dosage: UNK
     Dates: start: 20170317, end: 20190102
  3. WYPAX [Concomitant]
     Active Substance: LORAZEPAM
     Dosage: UNK, PRN
     Dates: start: 201111
  4. PREZCOBIX [Concomitant]
     Active Substance: COBICISTAT\DARUNAVIR ETHANOLATE
     Indication: HIV INFECTION
     Dosage: UNK
     Dates: start: 20170317, end: 20190102
  5. DESCOVY [Concomitant]
     Active Substance: EMTRICITABINE\TENOFOVIR ALAFENAMIDE FUMARATE
     Dosage: UNK
     Dates: start: 20190126, end: 20190312
  6. SYMTUZA [Concomitant]
     Active Substance: COBICISTAT\DARUNAVIR\EMTRICITABINE\TENOFOVIR ALAFENAMIDE
     Indication: HIV INFECTION
     Dosage: UNK
     Dates: start: 20190313
  7. DESCOVY [Suspect]
     Active Substance: EMTRICITABINE\TENOFOVIR ALAFENAMIDE FUMARATE
     Indication: HIV INFECTION
     Dosage: 1 DF, QD
     Route: 048
     Dates: start: 20190103, end: 20190125
  8. LEXOTAN [Concomitant]
     Active Substance: BROMAZEPAM
     Dosage: UNK, PRN
     Dates: start: 201111
  9. DEPAS (ETIZOLAM) [Concomitant]
     Active Substance: ETIZOLAM
     Dosage: UNK, PRN
     Dates: start: 201111
  10. TIVICAY [Suspect]
     Active Substance: DOLUTEGRAVIR SODIUM
     Indication: HIV INFECTION
     Dosage: 50 MG, QD
     Route: 048
     Dates: start: 20190103, end: 20190125
  11. TOLEDOMIN TABLETS [Concomitant]
     Dosage: 1 DF, 1D
     Dates: start: 201111
  12. PREZCOBIX [Concomitant]
     Active Substance: COBICISTAT\DARUNAVIR ETHANOLATE
     Dosage: UNK
     Dates: start: 20190126, end: 20190312

REACTIONS (2)
  - Hepatic function abnormal [Recovered/Resolved]
  - Drug-induced liver injury [Recovered/Resolved]

NARRATIVE: CASE EVENT DATE: 20190103
